FAERS Safety Report 10071218 (Version 1)
Quarter: 2014Q2

REPORT INFORMATION
  Report Type: Report from Study
  Country: US (occurrence: US)
  Receive Date: 20140410
  Receipt Date: 20140410
  Transmission Date: 20141212
  Serious: Yes (Other)
  Sender: FDA-Public Use
  Company Number: US-ABBVIE-14P-163-1219506-00

PATIENT
  Age: 20 Year
  Sex: Male

DRUGS (10)
  1. HUMIRA [Suspect]
     Indication: CROHN^S DISEASE
     Dates: start: 20130314, end: 201307
  2. HUMIRA [Suspect]
  3. HUMIRA [Suspect]
     Dosage: 2-40MG INJECTIONS
     Dates: start: 20140227, end: 20140227
  4. HUMIRA [Suspect]
     Dosage: 2-40MG INJECTIONS
     Dates: start: 20140228, end: 20140228
  5. HUMIRA [Suspect]
     Dosage: 2-40MG INJECTIONS
     Dates: start: 20140314, end: 20140314
  6. HUMIRA [Suspect]
     Dates: start: 20140328
  7. IMURAN [Concomitant]
     Indication: PRODUCT USED FOR UNKNOWN INDICATION
  8. IMODIUM [Concomitant]
     Indication: PRODUCT USED FOR UNKNOWN INDICATION
  9. MULTIVITAMIN [Concomitant]
     Indication: PRODUCT USED FOR UNKNOWN INDICATION
  10. TYLENOL [Concomitant]
     Indication: PRODUCT USED FOR UNKNOWN INDICATION

REACTIONS (14)
  - Enteritis [Recovering/Resolving]
  - Pain [Not Recovered/Not Resolved]
  - Abdominal distension [Not Recovered/Not Resolved]
  - Nausea [Not Recovered/Not Resolved]
  - Rash pruritic [Not Recovered/Not Resolved]
  - Rash erythematous [Not Recovered/Not Resolved]
  - Crohn^s disease [Not Recovered/Not Resolved]
  - Rash macular [Not Recovered/Not Resolved]
  - Alanine aminotransferase increased [Unknown]
  - Enteritis [Recovering/Resolving]
  - Large intestinal ulcer [Recovering/Resolving]
  - Granuloma [Recovering/Resolving]
  - Hepatic steatosis [Unknown]
  - Enteritis [Unknown]
